FAERS Safety Report 5450083-5 (Version None)
Quarter: 2007Q3

REPORT INFORMATION
  Report Type: 
  Country: None (occurrence: None)
  Receive Date: 20070912
  Receipt Date: 20070905
  Transmission Date: 20080115
  Serious: Yes (Hospitalization, Other)
  Sender: FDA-Public Use
  Company Number: US-MERCK-0706USA04969

PATIENT
  Age: 54 Year
  Sex: Male
  Weight: 93 kg

DRUGS (6)
  1. JANUVIA [Suspect]
     Indication: TYPE 2 DIABETES MELLITUS
     Route: 048
     Dates: start: 20070524, end: 20070626
  2. JANUVIA [Suspect]
     Route: 048
     Dates: start: 20070701
  3. REQUIP [Concomitant]
     Route: 065
  4. VYTORIN [Concomitant]
     Route: 048
  5. AMBIEN [Concomitant]
     Route: 065
  6. AVANDIA [Concomitant]
     Route: 065

REACTIONS (1)
  - INFECTION [None]
